FAERS Safety Report 4486891-7 (Version None)
Quarter: 2004Q4

REPORT INFORMATION
  Report Type: 
  Country: None (occurrence: None)
  Receive Date: 20041022
  Receipt Date: 20041011
  Transmission Date: 20050328
  Serious: Yes (Other)
  Sender: FDA-Public Use
  Company Number: 200418621BWH

PATIENT
  Age: 60 Year
  Sex: Male
  Weight: 86.1834 kg

DRUGS (8)
  1. LEVITRA [Suspect]
  2. ENALAPRIL [Concomitant]
  3. ATENOLOL [Concomitant]
  4. DOXAZOSIN [Concomitant]
  5. PIROXICAM [Concomitant]
  6. ASPIRIN [Concomitant]
  7. MULTI-VITAMIN [Concomitant]
  8. SAW PALMETTO [Concomitant]

REACTIONS (5)
  - BLINDNESS [None]
  - RETINAL ARTERY OCCLUSION [None]
  - RETINAL OEDEMA [None]
  - TRICUSPID VALVE DISEASE [None]
  - TRICUSPID VALVE INCOMPETENCE [None]
